FAERS Safety Report 10405005 (Version 1)
Quarter: 2014Q3

REPORT INFORMATION
  Report Type: Spontaneous
  Country: US (occurrence: None)
  Receive Date: 20140819
  Receipt Date: 20140819
  Transmission Date: 20150326
  Serious: Yes (Life-Threatening, Hospitalization)
  Sender: FDA-Public Use
  Company Number: None

PATIENT
  Age: 83 Year
  Sex: Male
  Weight: 81.19 kg

DRUGS (12)
  1. BABY ASPIRIN [Concomitant]
     Active Substance: ASPIRIN
  2. CLOPIDOGREL BISULFATE. [Concomitant]
     Active Substance: CLOPIDOGREL BISULFATE
  3. BYSTOLIC [Concomitant]
     Active Substance: NEBIVOLOL HYDROCHLORIDE
  4. CORTICOSTEROID [Suspect]
     Active Substance: CORTICOSTEROID NOS
     Indication: NECK PAIN
     Dosage: BY INJECTION ?BY THE DR.??THERAPY?MAY 28TH
     Route: 042
  5. CITALOPRAM [Concomitant]
     Active Substance: CITALOPRAM HYDROBROMIDE
  6. MENS 1 A DAY VITAMIN [Concomitant]
  7. CORTICOSTEROID [Suspect]
     Active Substance: CORTICOSTEROID NOS
     Indication: HEADACHE
     Dosage: BY INJECTION ?BY THE DR.??THERAPY?MAY 28TH
     Route: 042
  8. TAMSULSON [Concomitant]
  9. DRINK HONEY AND VINEGAR MIX [Concomitant]
  10. SIMVASTATIN. [Concomitant]
     Active Substance: SIMVASTATIN
  11. BIOSTEM LIQUID BIOCAPS [Concomitant]
  12. GREEN COFFEE BEAN MAX [Concomitant]

REACTIONS (1)
  - Cerebrovascular accident [None]

NARRATIVE: CASE EVENT DATE: 20140408
